FAERS Safety Report 6624747-1 (Version None)
Quarter: 2010Q1

REPORT INFORMATION
  Report Type: 
  Country: None (occurrence: None)
  Receive Date: 20100310
  Receipt Date: 20091218
  Transmission Date: 20100710
  Serious: Yes (Other)
  Sender: FDA-Public Use
  Company Number: GB-PFIZER INC-2010030857

PATIENT
  Sex: Male

DRUGS (3)
  1. NELFINAVIR MESILATE [Suspect]
     Indication: ANTIRETROVIRAL THERAPY
     Dosage: UNKNOWN
     Route: 064
     Dates: start: 20030715
  2. TENOFOVIR [Suspect]
     Indication: ANTIRETROVIRAL THERAPY
     Dosage: UNKNOWN
     Route: 064
     Dates: start: 20030715
  3. EMTRICITABINE [Suspect]
     Indication: ANTIRETROVIRAL THERAPY
     Dosage: UNKNOWN
     Route: 064
     Dates: start: 20061128

REACTIONS (2)
  - DRUG EXPOSURE DURING PREGNANCY [None]
  - HYDRONEPHROSIS [None]
